FAERS Safety Report 14446287 (Version 1)
Quarter: 2018Q1

REPORT INFORMATION
  Report Type: Report from Study
  Country: JP (occurrence: JP)
  Receive Date: 20180126
  Receipt Date: 20180126
  Transmission Date: 20180509
  Serious: Yes (Hospitalization)
  Sender: FDA-Public Use
  Company Number: JP-ACTELION-A-CH2018-166391

PATIENT
  Age: 70 Year
  Sex: Male
  Weight: 60 kg

DRUGS (12)
  1. FML [Concomitant]
     Active Substance: FLUOROMETHOLONE
     Dosage: UNK
     Dates: start: 20170609, end: 201712
  2. MEPTIN AIR [Concomitant]
     Active Substance: PROCATEROL HYDROCHLORIDE
  3. SELEXIPAG [Suspect]
     Active Substance: SELEXIPAG
     Indication: PERIPHERAL ARTERIAL OCCLUSIVE DISEASE
     Dosage: 3200 ?G, QD
     Route: 048
     Dates: start: 20170608, end: 20171016
  4. SELEXIPAG [Suspect]
     Active Substance: SELEXIPAG
     Dosage: 400 ?G, QD
     Route: 048
     Dates: start: 20170301
  5. SELEXIPAG [Suspect]
     Active Substance: SELEXIPAG
     Dosage: UNK ?G, QD
     Route: 048
  6. BAYASPIRIN [Concomitant]
     Active Substance: ASPIRIN
     Dosage: 400 MG, UNK
  7. ALESION [Concomitant]
     Active Substance: EPINASTINE HYDROCHLORIDE
     Dosage: UNK
     Dates: start: 20170609, end: 201712
  8. SELEXIPAG [Suspect]
     Active Substance: SELEXIPAG
     Dosage: UNK ?G, QD
     Route: 048
  9. FLUTIFORM [Concomitant]
     Active Substance: FLUTICASONE PROPIONATE\FORMOTEROL FUMARATE
     Dosage: 4 DF, UNK
  10. SELEXIPAG [Suspect]
     Active Substance: SELEXIPAG
     Indication: PERIPHERAL ARTERIAL OCCLUSIVE DISEASE
     Dosage: 3200 ?G, QD
     Route: 048
     Dates: start: 20170608, end: 20171016
  11. SELEXIPAG [Suspect]
     Active Substance: SELEXIPAG
     Dosage: 400 ?G, QD
     Route: 048
     Dates: start: 20170301
  12. AIMIX [Concomitant]
     Active Substance: AMLODIPINE BESYLATE\IRBESARTAN
     Dosage: 1 DF, UNK
     Dates: start: 20171220

REACTIONS (4)
  - Chest pain [Recovered/Resolved]
  - Alcohol use [Recovered/Resolved]
  - Stent placement [Recovered/Resolved]
  - Percutaneous coronary intervention [Recovered/Resolved]

NARRATIVE: CASE EVENT DATE: 20170830
